FAERS Safety Report 21101261 (Version 3)
Quarter: 2022Q3

REPORT INFORMATION
  Report Type: Report from Study
  Country: CA (occurrence: CA)
  Receive Date: 20220719
  Receipt Date: 20220813
  Transmission Date: 20221027
  Serious: Yes (Other)
  Sender: FDA-Public Use
  Company Number: CA-NOVARTISPH-NVSC2022CA117961

PATIENT
  Age: 45 Year
  Sex: Female

DRUGS (1)
  1. KESIMPTA [Suspect]
     Active Substance: OFATUMUMAB
     Indication: Relapsing-remitting multiple sclerosis
     Dosage: UNK
     Route: 058
     Dates: start: 20220513

REACTIONS (5)
  - Kidney infection [Unknown]
  - Paraesthesia [Recovered/Resolved]
  - SARS-CoV-2 test positive [Unknown]
  - Eye infection [Unknown]
  - Vision blurred [Unknown]

NARRATIVE: CASE EVENT DATE: 20220515
